FAERS Safety Report 16618543 (Version 2)
Quarter: 2020Q3

REPORT INFORMATION
  Report Type: Report from Study
  Country: BR (occurrence: BR)
  Receive Date: 20190723
  Receipt Date: 20200831
  Transmission Date: 20201102
  Serious: Yes (Hospitalization)
  Sender: FDA-Public Use
  Company Number: BR-ELI_LILLY_AND_COMPANY-BR201907007031

PATIENT
  Sex: Female

DRUGS (2)
  1. FORTEO [Suspect]
     Active Substance: TERIPARATIDE
     Indication: OSTEOPOROSIS
     Dosage: UNK UNK, UNKNOWN
     Route: 058
     Dates: start: 20181114, end: 201912
  2. HEPARIN [Concomitant]
     Active Substance: HEPARIN SODIUM
     Dosage: UNK, UNKNOWN
     Route: 065

REACTIONS (4)
  - Visual impairment [Unknown]
  - Eye haemorrhage [Unknown]
  - Oral candidiasis [Unknown]
  - Renal failure [Recovering/Resolving]
